FAERS Safety Report 8581438-8 (Version None)
Quarter: 2012Q3

REPORT INFORMATION
  Report Type: 
  Country: None (occurrence: None)
  Receive Date: 20120809
  Receipt Date: 20120801
  Transmission Date: 20120928
  Serious: Yes (Hospitalization)
  Sender: FDA-Public Use
  Company Number: JP-AMGEN-JPNSP2012039951

PATIENT
  Age: 81 Year
  Sex: Male

DRUGS (15)
  1. PRADAXA [Concomitant]
     Dosage: 75 MG, 2X/DAY
  2. RHEUMATREX [Concomitant]
     Indication: RHEUMATOID ARTHRITIS
     Dosage: 8 MG, WEEKLY
     Route: 048
  3. FOLIC ACID [Concomitant]
     Indication: PROPHYLAXIS
     Dosage: 5 MG, WEEKLY
     Route: 048
  4. PREDNISOLONE [Concomitant]
     Indication: RHEUMATOID ARTHRITIS
     Dosage: 4 MG/DAY
     Dates: start: 20120223, end: 20120412
  5. ACTONEL [Concomitant]
     Indication: OSTEOPOROSIS PROPHYLAXIS
     Dosage: 17.5 MG, WEEKLY
     Route: 048
  6. ENBREL [Suspect]
     Indication: RHEUMATOID ARTHRITIS
     Dosage: 25 MG, WEEKLY
     Route: 058
     Dates: end: 20120118
  7. PRADAXA [Concomitant]
     Indication: CEREBRAL INFARCTION
     Dosage: UNK
     Route: 048
  8. MUCOSTA [Concomitant]
     Indication: PROPHYLAXIS
     Dosage: 100 MG, 2X/DAY
     Route: 048
  9. ALFAROL [Concomitant]
     Indication: OSTEOPOROSIS PROPHYLAXIS
     Dosage: 0.5 UG, 1X/DAY
     Route: 048
  10. SUNRYTHM [Concomitant]
     Indication: ARRHYTHMIA
     Dosage: UNK
     Route: 048
  11. PREDNISOLONE [Concomitant]
     Dosage: 3 MG/DAY
     Dates: start: 20120413, end: 20120508
  12. ENBREL [Suspect]
     Dosage: 50 MG, WEEKLY
     Route: 058
     Dates: start: 20120119
  13. PREDNISOLONE [Concomitant]
     Dosage: 2 MG/DAY
     Dates: start: 20120509
  14. PREDNISOLONE [Concomitant]
     Dosage: 1 MG, BID
     Route: 048
  15. ANPLAG [Concomitant]
     Indication: SPINAL COLUMN STENOSIS
     Dosage: 100 MG, 2X/DAY
     Route: 048

REACTIONS (1)
  - CEREBRAL INFARCTION [None]
